FAERS Safety Report 10098451 (Version 4)
Quarter: 2014Q3

REPORT INFORMATION
  Report Type: Spontaneous
  Country: FR (occurrence: None)
  Receive Date: 20140421
  Receipt Date: 20140723
  Transmission Date: 20150326
  Serious: Yes (Other)
  Sender: FDA-Public Use
  Company Number: 2014FR003172

PATIENT
  Age: 63 Year
  Sex: Male
  Weight: 68 kg

DRUGS (6)
  1. AMAREL (GLIMEPIRIDE) [Concomitant]
     Active Substance: GLIMEPIRIDE
  2. PONATINIB [Suspect]
     Active Substance: PONATINIB
     Indication: CHRONIC MYELOID LEUKAEMIA
     Route: 048
     Dates: start: 20110526, end: 20130918
  3. BEFIZAL [Concomitant]
     Active Substance: BEZAFIBRATE
  4. ODRIK [Concomitant]
     Active Substance: TRANDOLAPRIL
  5. KAYEXALATE [Concomitant]
     Active Substance: SODIUM POLYSTYRENE SULFONATE
  6. GLUCOPHAGE [Concomitant]
     Active Substance: METFORMIN HYDROCHLORIDE

REACTIONS (4)
  - Peripheral arterial occlusive disease [None]
  - Dizziness [None]
  - Peripheral artery thrombosis [None]
  - Arteriosclerosis [None]

NARRATIVE: CASE EVENT DATE: 20121226
